FAERS Safety Report 24263519 (Version 2)
Quarter: 2025Q3

REPORT INFORMATION
  Report Type: Spontaneous
  Country: US (occurrence: US)
  Receive Date: 20240829
  Receipt Date: 20250826
  Transmission Date: 20251020
  Serious: No
  Sender: BIOCON
  Company Number: 46905312

PATIENT

DRUGS (1)
  1. HULIO [Suspect]
     Active Substance: ADALIMUMAB-FKJP
     Indication: Product used for unknown indication
     Dosage: 40 MILLIGRAM, EVERY OTHER WEEK
     Route: 058

REACTIONS (1)
  - Device malfunction [Unknown]
